FAERS Safety Report 7252976-5 (Version None)
Quarter: 2011Q1

REPORT INFORMATION
  Report Type: 
  Country: None (occurrence: None)
  Receive Date: 20110129
  Receipt Date: 20100322
  Transmission Date: 20110831
  Serious: No
  Sender: FDA-Public Use
  Company Number: US-ABBOTT-10P-163-0633904-00

PATIENT
  Sex: Male
  Weight: 33 kg

DRUGS (5)
  1. COLEZOL [Concomitant]
     Indication: INFLAMMATORY BOWEL DISEASE
  2. ADDARAL [Concomitant]
     Indication: ATTENTION DEFICIT/HYPERACTIVITY DISORDER
  3. HUMIRA [Suspect]
     Indication: COLITIS
     Dates: start: 20091123
  4. HUMIRA [Suspect]
     Indication: INFLAMMATORY BOWEL DISEASE
  5. CULTURELLE [Concomitant]
     Indication: INFLAMMATORY BOWEL DISEASE

REACTIONS (2)
  - INJECTION SITE NODULE [None]
  - INJECTION SITE ERYTHEMA [None]
